FAERS Safety Report 21121860 (Version 2)
Quarter: 2022Q3

REPORT INFORMATION
  Report Type: Spontaneous
  Country: DE (occurrence: DE)
  Receive Date: 20220722
  Receipt Date: 20220825
  Transmission Date: 20221027
  Serious: Yes (Other)
  Sender: FDA-Public Use
  Company Number: DE-009507513-2207DEU003906

PATIENT
  Age: 42 Year
  Sex: Female

DRUGS (3)
  1. RIBAVIRIN [Suspect]
     Active Substance: RIBAVIRIN
     Indication: Hepatitis E
     Dosage: 800 MILLIGRAM, QD
     Route: 048
  2. R DHAP [Concomitant]
     Dosage: 2 CYCLES
  3. RICE [CARBOPLATIN;ETOPOSIDE;IFOSFAMIDE;RITUXIMAB] [Concomitant]

REACTIONS (2)
  - Cytopenia [Unknown]
  - Off label use [Unknown]
